FAERS Safety Report 24003747 (Version 1)
Quarter: 2024Q2

REPORT INFORMATION
  Report Type: Spontaneous
  Country: AU (occurrence: AU)
  Receive Date: 20240624
  Receipt Date: 20240624
  Transmission Date: 20240715
  Serious: Yes (Hospitalization, Other)
  Sender: FDA-Public Use
  Company Number: AU-AstraZeneca-2024A118483

PATIENT
  Age: 57 Year
  Sex: Female

DRUGS (9)
  1. CAPIVASERTIB [Suspect]
     Active Substance: CAPIVASERTIB
     Indication: Breast cancer metastatic
     Dosage: 800 MG, QD
     Route: 048
     Dates: start: 20240406, end: 20240415
  2. CAPIVASERTIB [Suspect]
     Active Substance: CAPIVASERTIB
     Dosage: 800 MG, QD
     Route: 048
     Dates: start: 20240405, end: 20240405
  3. FULVESTRANT [Suspect]
     Active Substance: FULVESTRANT
     Indication: Breast cancer metastatic
     Dosage: 500 MG
     Route: 030
     Dates: start: 20240405, end: 20240419
  4. PALBOCICLIB [Suspect]
     Active Substance: PALBOCICLIB
     Indication: Breast cancer metastatic
     Dosage: 125 MG, QD
     Route: 048
     Dates: start: 20240405, end: 20240416
  5. PREDNISOLONE [Suspect]
     Active Substance: PREDNISOLONE
     Indication: Product used for unknown indication
     Dosage: 80 MG
     Route: 065
  6. CALCIUM [Concomitant]
     Active Substance: CALCIUM
     Indication: Prophylaxis
     Dosage: 1.5 MG
     Route: 048
     Dates: start: 20240221
  7. CHOLECALCIFEROL [Concomitant]
     Active Substance: CHOLECALCIFEROL
     Indication: Prophylaxis
     Dosage: 25 UG
     Route: 048
     Dates: start: 20240221
  8. METFORMIN HYDROCHLORIDE [Concomitant]
     Active Substance: METFORMIN HYDROCHLORIDE
     Indication: Hyperglycaemia
     Dosage: 1000 MG
     Route: 048
     Dates: start: 20240220
  9. TAPENTADOL [Concomitant]
     Active Substance: TAPENTADOL
     Indication: Breast cancer
     Dosage: 50 MG
     Route: 048
     Dates: start: 20240221

REACTIONS (3)
  - Hyperglycaemia [Not Recovered/Not Resolved]
  - Lipase increased [Not Recovered/Not Resolved]
  - Hepatic enzyme increased [Not Recovered/Not Resolved]

NARRATIVE: CASE EVENT DATE: 20240517
